FAERS Safety Report 18333805 (Version 1)
Quarter: 2020Q3

REPORT INFORMATION
  Report Type: Spontaneous
  Country: US (occurrence: US)
  Receive Date: 20200930
  Receipt Date: 20200930
  Transmission Date: 20201103
  Serious: Yes (Other)
  Sender: FDA-Public Use
  Company Number: None

PATIENT
  Age: 61 Year
  Sex: Female

DRUGS (3)
  1. N/A [Concomitant]
     Active Substance: UNSPECIFIED INGREDIENT
  2. SILDENAFIL. [Suspect]
     Active Substance: SILDENAFIL
     Indication: PULMONARY HYPERTENSION
     Route: 048
     Dates: start: 20180222
  3. GEL?ONE [DEVICE] [Suspect]
     Active Substance: DEVICE
     Indication: OSTEOARTHRITIS
     Dosage: ?          OTHER FREQUENCY:ONE TIME;OTHER ROUTE:INJECTABLE?
     Dates: start: 20200924

REACTIONS (2)
  - Joint injection [None]
  - Spinal operation [None]
